FAERS Safety Report 5183846-4 (Version None)
Quarter: 2006Q4

REPORT INFORMATION
  Report Type: 
  Country: None (occurrence: None)
  Receive Date: 20061220
  Receipt Date: 20061215
  Transmission Date: 20070319
  Serious: Yes (Hospitalization)
  Sender: FDA-Public Use
  Company Number: FR-GLAXOSMITHKLINE-B0450984A

PATIENT
  Age: 74 Year
  Sex: Male

DRUGS (21)
  1. AUGMENTIN '125' [Suspect]
     Dosage: 1G THREE TIMES PER DAY
     Route: 065
     Dates: start: 20061106, end: 20061108
  2. DEPAKENE [Suspect]
     Dosage: 1.5G PER DAY
     Route: 065
     Dates: start: 20061107, end: 20061108
  3. RIVOTRIL [Suspect]
     Indication: CONVULSION
     Dosage: 1MG PER DAY
     Route: 065
     Dates: start: 20061106, end: 20061106
  4. SOLU-MEDROL [Suspect]
     Dosage: 20MG PER DAY
     Route: 065
     Dates: start: 20061107, end: 20061108
  5. LOXEN [Suspect]
     Indication: HYPERTENSION
     Dosage: 50MG TWICE PER DAY
     Route: 042
     Dates: start: 20061106, end: 20061107
  6. FOSPHENYTOIN SODIUM [Suspect]
     Indication: CONVULSION
     Dosage: 1G PER DAY
     Route: 065
     Dates: start: 20061106, end: 20061106
  7. HYTACAND [Concomitant]
     Route: 065
  8. PLAVIX [Concomitant]
     Route: 065
  9. DAFALGAN [Concomitant]
     Route: 065
  10. TOPALGIC ( FRANCE ) [Concomitant]
     Route: 065
  11. BISOPROLOL FUMARATE [Concomitant]
     Indication: HYPERTENSION
     Route: 065
  12. ZOLPIDEM TARTRATE [Concomitant]
     Route: 065
  13. TRACRIUM [Concomitant]
     Route: 065
     Dates: start: 20061106
  14. THIOPENTAL SODIUM [Concomitant]
     Route: 065
     Dates: start: 20061106
  15. FENTANYL [Concomitant]
     Indication: SEDATION
     Route: 065
     Dates: start: 20061106
  16. HYPNOVEL [Concomitant]
     Indication: SEDATION
     Route: 065
     Dates: start: 20061106
  17. INSULINE [Concomitant]
     Route: 065
     Dates: start: 20061106
  18. TRIATEC [Concomitant]
     Indication: HYPERTENSION
     Route: 065
     Dates: start: 20061108
  19. ATROVENT [Concomitant]
     Route: 055
     Dates: start: 20061108, end: 20061108
  20. BRICANYL [Concomitant]
     Route: 055
     Dates: start: 20061108, end: 20061108
  21. PERFALGAN [Concomitant]
     Route: 065
     Dates: start: 20061106, end: 20061108

REACTIONS (5)
  - ACUTE GENERALISED EXANTHEMATOUS PUSTULOSIS [None]
  - BLISTER [None]
  - LEUKOCYTOSIS [None]
  - RASH ERYTHEMATOUS [None]
  - RASH PUSTULAR [None]
